FAERS Safety Report 13383219 (Version 1)
Quarter: 2017Q1

REPORT INFORMATION
  Report Type: Spontaneous
  Country: JP (occurrence: JP)
  Receive Date: 20170329
  Receipt Date: 20170329
  Transmission Date: 20170429
  Serious: Yes (Other)
  Sender: FDA-Public Use
  Company Number: JP-PFIZER INC-2017130147

PATIENT
  Age: 64 Year
  Sex: Male

DRUGS (8)
  1. LYRICA [Suspect]
     Active Substance: PREGABALIN
     Dosage: 75 MG, DAILY
  2. CANDESARTAN [Suspect]
     Active Substance: CANDESARTAN
     Dosage: 8 MG, DAILY
  3. AMLODIPINE BESILATE [Suspect]
     Active Substance: AMLODIPINE BESYLATE
     Dosage: 5 MG, DAILY
  4. URIEF [Suspect]
     Active Substance: SILODOSIN
     Dosage: 8 MG, DAILY
  5. EQUA [Suspect]
     Active Substance: VILDAGLIPTIN
     Dosage: 50 MG, DAILY
  6. ALLOPURINOL. [Suspect]
     Active Substance: ALLOPURINOL
     Dosage: 100 MG, DAILY
  7. MAGMITT [Suspect]
     Active Substance: MAGNESIUM OXIDE
     Dosage: 500 MG, DAILY
  8. XARELTO [Suspect]
     Active Substance: RIVAROXABAN
     Dosage: 10 MG, DAILY

REACTIONS (1)
  - Bradycardia [Recovered/Resolved]

NARRATIVE: CASE EVENT DATE: 20170308
